FAERS Safety Report 12634179 (Version 1)
Quarter: 2016Q3

REPORT INFORMATION
  Report Type: Spontaneous
  Country: US (occurrence: US)
  Receive Date: 20160809
  Receipt Date: 20160809
  Transmission Date: 20161109
  Serious: Yes (Other)
  Sender: FDA-Public Use
  Company Number: US-TEVA-682609USA

PATIENT
  Age: 34 Year
  Sex: Female

DRUGS (10)
  1. ISOPRENALINE [Suspect]
     Active Substance: ISOPROTERENOL HYDROCHLORIDE
     Indication: OBESITY
     Dosage: 5 MICROG/MIN
     Route: 041
  2. SPIRONOLACTONE. [Concomitant]
     Active Substance: SPIRONOLACTONE
     Indication: SWELLING
     Route: 065
  3. VANCOMYCIN [Concomitant]
     Active Substance: VANCOMYCIN
     Indication: STAPHYLOCOCCAL INFECTION
     Route: 042
  4. MIDODRINE [Concomitant]
     Active Substance: MIDODRINE
     Route: 065
  5. HYDROCHLOROTHIAZIDE. [Concomitant]
     Active Substance: HYDROCHLOROTHIAZIDE
     Indication: SWELLING
     Route: 065
  6. PYRIDOSTIGMINE [Concomitant]
     Active Substance: PYRIDOSTIGMINE
     Route: 065
  7. WARFARIN [Concomitant]
     Active Substance: WARFARIN
     Indication: ATRIAL FIBRILLATION
     Route: 065
  8. ERYTHROPOIETIN [Concomitant]
     Active Substance: ERYTHROPOIETIN
     Route: 065
  9. FLUDROCORTISONE [Suspect]
     Active Substance: FLUDROCORTISONE
     Dosage: .4 MILLIGRAM DAILY;
     Route: 065
  10. PINDOLOL. [Concomitant]
     Active Substance: PINDOLOL
     Route: 065

REACTIONS (7)
  - Fall [Recovering/Resolving]
  - Tachycardia [Recovering/Resolving]
  - Palpitations [Recovering/Resolving]
  - Syncope [Recovering/Resolving]
  - Panic attack [Recovering/Resolving]
  - Swelling [Unknown]
  - Dizziness [Recovering/Resolving]
